FAERS Safety Report 8594794-1 (Version None)
Quarter: 2012Q3

REPORT INFORMATION
  Report Type: 
  Country: None (occurrence: None)
  Receive Date: 20120815
  Receipt Date: 20120731
  Transmission Date: 20120928
  Serious: Yes (Hospitalization)
  Sender: FDA-Public Use
  Company Number: DE-UCBSA-062219

PATIENT
  Age: 47 Year
  Sex: Male
  Weight: 90 kg

DRUGS (4)
  1. VIMPAT [Suspect]
     Indication: EPILEPSY
     Route: 048
     Dates: start: 20111001
  2. IBUPROFEN [Concomitant]
     Dosage: 1800 MG
  3. VALPROIC ACID [Concomitant]
     Dosage: 500 (UNITS UNSPECIFIED) 4 TIMES DAILY: 2000
     Route: 048
     Dates: start: 20120618
  4. VALPROIC ACID [Concomitant]
     Route: 048
     Dates: start: 20100101, end: 20120617

REACTIONS (3)
  - HEADACHE [None]
  - CONVULSION [None]
  - ANTICONVULSANT DRUG LEVEL DECREASED [None]
